FAERS Safety Report 23842887 (Version 1)
Quarter: 2024Q2

REPORT INFORMATION
  Report Type: Report from Study
  Country: GB (occurrence: GB)
  Receive Date: 20240510
  Receipt Date: 20240510
  Transmission Date: 20240716
  Serious: Yes (Other)
  Sender: FDA-Public Use
  Company Number: GB-UCBSA-2024022921

PATIENT
  Age: 0 Year

DRUGS (3)
  1. BIMEKIZUMAB [Suspect]
     Active Substance: BIMEKIZUMAB
     Indication: Psoriasis
     Dosage: 320 MILLIGRAM, EV 8 WEEKS
     Route: 064
     Dates: start: 20230414, end: 20231003
  2. CHLORTETRACYCLINE\CLOBETASONE\NYSTATIN [Concomitant]
     Active Substance: CHLORTETRACYCLINE\CLOBETASONE\NYSTATIN
     Indication: Product used for unknown indication
     Dosage: UNK
     Route: 064
  3. HYDROMOL [EMULSIFYING WAX;PARAFFIN SOFT;PARAFFIN, LIQUID] [Concomitant]
     Indication: Product used for unknown indication
     Dosage: UNK
     Route: 064

REACTIONS (3)
  - Premature baby [Unknown]
  - Maternal exposure before pregnancy [Unknown]
  - Maternal exposure during pregnancy [Unknown]

NARRATIVE: CASE EVENT DATE: 20230414
